FAERS Safety Report 15076602 (Version 1)
Quarter: 2018Q2

REPORT INFORMATION
  Report Type: Spontaneous
  Country: HK (occurrence: HK)
  Receive Date: 20180627
  Receipt Date: 20180627
  Transmission Date: 20180711
  Serious: Yes (Other)
  Sender: FDA-Public Use
  Company Number: HK-ACELLA PHARMACEUTICALS, LLC-2050066

PATIENT
  Sex: Male

DRUGS (2)
  1. AMITRIPTYLINE HYDROCHLORIDE. [Suspect]
     Active Substance: AMITRIPTYLINE HYDROCHLORIDE
  2. HYDROCODONE BITARTRATE AND CHLORPHENIRAMINE MALEATE [Suspect]
     Active Substance: CHLORPHENIRAMINE MALEATE\HYDROCODONE BITARTRATE

REACTIONS (2)
  - Apgar score low [Unknown]
  - Heart rate decreased [Unknown]
